FAERS Safety Report 14546328 (Version 1)
Quarter: 2018Q1

REPORT INFORMATION
  Report Type: Spontaneous
  Country: PT (occurrence: PT)
  Receive Date: 20180219
  Receipt Date: 20180219
  Transmission Date: 20180509
  Serious: Yes (Hospitalization, Other)
  Sender: FDA-Public Use
  Company Number: PT-IPCA LABORATORIES LIMITED-IPC-2018-PT-000267

PATIENT
  Age: 67 Year
  Sex: Male

DRUGS (1)
  1. METFORMIN [Suspect]
     Active Substance: METFORMIN HYDROCHLORIDE
     Indication: DIABETES MELLITUS
     Dosage: 3000 MG, QD
     Route: 065

REACTIONS (2)
  - Lactic acidosis [Recovering/Resolving]
  - Syncope [Unknown]
